FAERS Safety Report 7631937-8 (Version None)
Quarter: 2011Q3

REPORT INFORMATION
  Report Type: 
  Country: None (occurrence: None)
  Receive Date: 20110725
  Receipt Date: 20110705
  Transmission Date: 20111222
  Serious: Yes (Other)
  Sender: FDA-Public Use
  Company Number: CA-US-EMD SERONO, INC.-230071J09CAN

PATIENT
  Sex: Female

DRUGS (15)
  1. TEGRETOL [Concomitant]
  2. REBIF [Suspect]
     Indication: RELAPSING-REMITTING MULTIPLE SCLEROSIS
     Dates: start: 20010802
  3. VITAMIN D [Concomitant]
  4. TIAZAC [Concomitant]
  5. NEXIUM [Concomitant]
  6. BACLOFEN [Concomitant]
  7. SEREVENT [Concomitant]
  8. MULTI-VITAMIN [Concomitant]
  9. LECITHIN [Concomitant]
  10. IBUPROFEN [Concomitant]
  11. FLOVENT [Concomitant]
  12. VITAMIN E [Concomitant]
  13. ZANAFLEX [Concomitant]
  14. ALBUTEROL [Concomitant]
  15. ATACAND [Concomitant]

REACTIONS (7)
  - ANAEMIA [None]
  - MENORRHAGIA [None]
  - BURNING SENSATION [None]
  - NECK PAIN [None]
  - MUSCULOSKELETAL PAIN [None]
  - MUSCLE SPASTICITY [None]
  - PRURITUS GENERALISED [None]
